FAERS Safety Report 17629685 (Version 2)
Quarter: 2020Q2

REPORT INFORMATION
  Report Type: Spontaneous
  Country: DE (occurrence: DE)
  Receive Date: 20200406
  Receipt Date: 20200501
  Transmission Date: 20200713
  Serious: Yes (Other)
  Sender: FDA-Public Use
  Company Number: DE-MYLANLABS-2020M1033646

PATIENT
  Age: 61 Year
  Sex: Female
  Weight: 66 kg

DRUGS (3)
  1. METOPROLOL. [Concomitant]
     Active Substance: METOPROLOL
     Dosage: 50 MILLIGRAM, QD
     Route: 048
  2. VALSARTAN DURA [Suspect]
     Active Substance: VALSARTAN
     Indication: PRODUCT USED FOR UNKNOWN INDICATION
     Dosage: 160 MILLIGRAM, QD
     Dates: start: 2012
  3. THYRONAJOD [Concomitant]
     Active Substance: LEVOTHYROXINE SODIUM\POTASSIUM IODIDE
     Dosage: 75 MILLIGRAM, QD (STRENGTH 75)

REACTIONS (4)
  - Fear of disease [Not Recovered/Not Resolved]
  - Mental impairment [Not Recovered/Not Resolved]
  - Quality of life decreased [Not Recovered/Not Resolved]
  - Recalled product administered [Unknown]
